FAERS Safety Report 6924452-8 (Version None)
Quarter: 2010Q3

REPORT INFORMATION
  Report Type: 
  Country: None (occurrence: None)
  Receive Date: 20100810
  Receipt Date: 20100730
  Transmission Date: 20110219
  Serious: Yes (Other)
  Sender: FDA-Public Use
  Company Number: 20100351

PATIENT
  Age: 75 Year
  Sex: Male

DRUGS (17)
  1. VENOFER [Suspect]
     Indication: ANAEMIA
     Dosage: 100 MG/5 ML SOLUTION ONCE INTRAVENOUS DRIP
     Route: 041
     Dates: start: 20100511, end: 20100511
  2. ASPIRIN [Concomitant]
  3. DIPRIVAN [Concomitant]
  4. EUPANTOL (PANTOPRAZOLE) [Concomitant]
  5. NAROPEINE (ROPIVACAINE HYDROCHLORIDE ANHYDRE) [Concomitant]
  6. PERFALGAN (PARACETAMOL) [Concomitant]
  7. PIASCLEDINE (INSAPONIFIABLE EXTRACT OF AVOVADO OIL, INSAPONIFIABLE EXT [Concomitant]
  8. PROFENIDE (KETOPROFENE) [Concomitant]
  9. SEVOFLURANE [Concomitant]
  10. STRUCTUM (CHONDROITIN SULFATE) [Concomitant]
  11. SUFENTANIL CITRATE [Concomitant]
  12. TAHOR (ATORVASTATINE) [Concomitant]
  13. VASTAREL (TRIMETADIZINE) [Concomitant]
  14. RIVAROXABAN [Concomitant]
  15. XATRAL (ALFUZOSINE) [Concomitant]
  16. CEFAMANDOLE SODIUM [Concomitant]
  17. MORPHINE [Concomitant]

REACTIONS (3)
  - ALCOHOLISM [None]
  - CHOLESTASIS [None]
  - CONFUSIONAL STATE [None]
